FAERS Safety Report 10197757 (Version 1)
Quarter: 2014Q2

REPORT INFORMATION
  Report Type: Spontaneous
  Country: CN (occurrence: CN)
  Receive Date: 20140527
  Receipt Date: 20140527
  Transmission Date: 20141212
  Serious: Yes (Hospitalization)
  Sender: FDA-Public Use
  Company Number: CN-ASTRAZENECA-2014SE35557

PATIENT
  Sex: Female
  Weight: 53 kg

DRUGS (3)
  1. ESOMEPRAZOLE MAGNESIUM [Suspect]
     Indication: LUNG INFECTION
     Dosage: 20 MG, 1 DF QD AC
     Route: 048
     Dates: end: 20130422
  2. CEFTRIAXONE SODIUM [Suspect]
     Indication: LUNG INFECTION
     Dosage: 1 DOSE Q12H
     Route: 042
     Dates: end: 20130411
  3. LEVOFLOXACIN LACTATE [Suspect]
     Indication: LUNG INFECTION
     Dosage: 100 MG, 3 DF BID PC
     Route: 048
     Dates: end: 20130422

REACTIONS (1)
  - Bone marrow failure [Not Recovered/Not Resolved]
